FAERS Safety Report 8455818-5 (Version None)
Quarter: 2012Q2

REPORT INFORMATION
  Report Type: 
  Country: None (occurrence: None)
  Receive Date: 20120621
  Receipt Date: 20120612
  Transmission Date: 20120825
  Serious: Yes (Other)
  Sender: FDA-Public Use
  Company Number: US-ASTRAZENECA-2012SE39234

PATIENT
  Age: 40 Year
  Sex: Male
  Weight: 131.5 kg

DRUGS (14)
  1. NEXIUM [Suspect]
     Indication: GASTROOESOPHAGEAL REFLUX DISEASE
     Route: 048
     Dates: start: 20060101
  2. NEXIUM [Suspect]
     Indication: DYSPEPSIA
     Route: 048
     Dates: start: 20060101
  3. NEXIUM [Suspect]
     Indication: GASTRINOMA
     Route: 048
     Dates: start: 20060101
  4. LISINOPRIL [Concomitant]
     Indication: BLOOD PRESSURE ABNORMAL
  5. LEVEMIR [Concomitant]
     Indication: DIABETES MELLITUS
  6. JANUVIA [Concomitant]
     Indication: BLOOD GLUCOSE ABNORMAL
  7. ASPIRIN [Concomitant]
     Indication: PROPHYLAXIS
  8. NEXIUM [Suspect]
     Indication: PROPHYLAXIS AGAINST GASTROINTESTINAL ULCER
     Route: 048
     Dates: start: 20060101
  9. METFORMIN HCL [Concomitant]
     Indication: TYPE 2 DIABETES MELLITUS
  10. LEXAPRO [Concomitant]
     Indication: ANXIETY
  11. NEXIUM [Suspect]
     Indication: PEPTIC ULCER
     Route: 048
     Dates: start: 20060101
  12. LEVOTHYROXINE [Concomitant]
     Indication: THYROID DISORDER
  13. FENOFIBRATE [Concomitant]
     Indication: BLOOD PRESSURE ABNORMAL
  14. OTC ALLERGY DECONGESTANT [Concomitant]
     Indication: HYPERSENSITIVITY

REACTIONS (6)
  - GASTROOESOPHAGEAL REFLUX DISEASE [None]
  - BLOOD GLUCOSE INCREASED [None]
  - DRUG DOSE OMISSION [None]
  - ANXIETY [None]
  - CONGENITAL CYSTIC KIDNEY DISEASE [None]
  - BLOOD TESTOSTERONE DECREASED [None]
